FAERS Safety Report 8826503 (Version 1)
Quarter: 2012Q4

REPORT INFORMATION
  Report Type: 
  Country: US (occurrence: US)
  Receive Date: 20121008
  Receipt Date: 20121008
  Transmission Date: 20130627
  Serious: Yes (Other)
  Sender: FDA-Public Use
  Company Number: PHEH2012US019236

PATIENT
  Sex: Female

DRUGS (10)
  1. GILENYA [Suspect]
     Route: 048
     Dates: start: 201204
  2. LOSARTAN [Concomitant]
  3. ST. JOHN^S WORT [Concomitant]
  4. VITAMIN D [Concomitant]
  5. VITAMIN C [Concomitant]
  6. CALCIUM [Concomitant]
     Dosage: UNK
  7. AMOXICILLIN [Concomitant]
  8. AMANTADINE [Concomitant]
     Dosage: UNK
  9. TOPIRAMATE [Concomitant]
  10. KEPPRA [Concomitant]

REACTIONS (3)
  - Loss of consciousness [Unknown]
  - Neutrophil count increased [Unknown]
  - Lymphocyte count decreased [Unknown]
